FAERS Safety Report 7054515-0 (Version None)
Quarter: 2010Q4

REPORT INFORMATION
  Report Type: 
  Country: None (occurrence: None)
  Receive Date: 20101020
  Receipt Date: 20101012
  Transmission Date: 20110411
  Serious: Yes (Hospitalization, Other)
  Sender: FDA-Public Use
  Company Number: NL-ROXANE LABORATORIES, INC.-2010-RO-01351RO

PATIENT
  Age: 51 Year
  Sex: Female

DRUGS (5)
  1. PREDNISONE TAB [Suspect]
     Indication: IMMUNOSUPPRESSION
     Route: 048
  2. MYCOPHENOLATE MOFETIL [Suspect]
     Indication: IMMUNOSUPPRESSION
  3. TACROLIMUS [Suspect]
     Indication: IMMUNOSUPPRESSION
  4. PREDNISOLONE [Suspect]
     Indication: IMMUNOSUPPRESSION
     Dosage: 100 MG
     Route: 042
  5. METHYLPREDNISOLONE [Suspect]
     Indication: TRANSPLANT REJECTION
     Route: 042

REACTIONS (3)
  - KIDNEY TRANSPLANT REJECTION [None]
  - OSTEONECROSIS [None]
  - TRANSPLANT REJECTION [None]
